FAERS Safety Report 17132023 (Version 1)
Quarter: 2019Q4

REPORT INFORMATION
  Report Type: Spontaneous
  Country: JP (occurrence: JP)
  Receive Date: 20191210
  Receipt Date: 20191210
  Transmission Date: 20200122
  Serious: Yes (Life-Threatening, Hospitalization, Other)
  Sender: FDA-Public Use
  Company Number: JP-SCIEGEN PHARMACEUTICALS INC-2019SCILIT00371

PATIENT
  Age: 63 Year
  Sex: Female

DRUGS (2)
  1. CELECOXIB. [Suspect]
     Active Substance: CELECOXIB
  2. PREGABALIN CAPSULES [Suspect]
     Active Substance: PREGABALIN

REACTIONS (1)
  - Drug-induced liver injury [Recovered/Resolved]
